FAERS Safety Report 17331616 (Version 1)
Quarter: 2020Q1

REPORT INFORMATION
  Report Type: Spontaneous
  Country: US (occurrence: US)
  Receive Date: 20200128
  Receipt Date: 20200128
  Transmission Date: 20200409
  Serious: No
  Sender: FDA-Public Use
  Company Number: US-ASTRAZENECA-2020SE00355

PATIENT
  Sex: Male
  Weight: 85.3 kg

DRUGS (2)
  1. FLUMIST QUADRIVALENT [Suspect]
     Active Substance: INFLUENZA A VIRUS A/CALIFORNIA/7/2009 (H1N1) LIVE(ATTENUATED) ANTIGEN\INFLUENZA A VIRUS A/TEXAS/50/2012 (H3N2) LIVE (ATTENUATED) ANTIGEN\INFLUENZA B VIRUS B/BRISBANE/60/2008 LIVE(ATTENUATED) ANTIGEN\INFLUENZA B VIRUS B/MASSACHUSETTS/2/2012 LIVE (ATTENUATED) ANTIGEN
     Indication: ANTIVIRAL PROPHYLAXIS
     Dosage: 0.2ML ONCE/SINGLE ADMINISTRATION
     Route: 045
     Dates: start: 201910
  2. CRESTOR [Suspect]
     Active Substance: ROSUVASTATIN CALCIUM
     Indication: BLOOD CHOLESTEROL INCREASED
     Route: 048

REACTIONS (1)
  - Influenza [Not Recovered/Not Resolved]
